FAERS Safety Report 6380152-7 (Version None)
Quarter: 2009Q3

REPORT INFORMATION
  Report Type: 
  Country: None (occurrence: None)
  Receive Date: 20090929
  Receipt Date: 20090923
  Transmission Date: 20100115
  Serious: No
  Sender: FDA-Public Use
  Company Number: US-JNJFOC-20090907262

PATIENT
  Sex: Female
  Weight: 39.92 kg

DRUGS (2)
  1. FENTANYL TRANSDERMAL SYSTEM [Suspect]
     Indication: BACK PAIN
     Route: 062
     Dates: start: 20090921
  2. UNKNOWN MEDICATION [Concomitant]

REACTIONS (1)
  - WRONG TECHNIQUE IN DRUG USAGE PROCESS [None]
